FAERS Safety Report 16110453 (Version 7)
Quarter: 2021Q1

REPORT INFORMATION
  Report Type: Report from Study
  Country: None (occurrence: US)
  Receive Date: 20190325
  Receipt Date: 20210112
  Transmission Date: 20210419
  Serious: Yes (Hospitalization, Other)
  Sender: FDA-Public Use
  Company Number: US-ABBVIE-19K-163-2714224-00

PATIENT
  Age: 69 Year
  Sex: Male
  Weight: 102.6 kg

DRUGS (15)
  1. LISINOPRIL. [Concomitant]
     Active Substance: LISINOPRIL
     Indication: CARDIAC DISORDER
  2. METOPROLOL. [Concomitant]
     Active Substance: METOPROLOL
     Indication: BLOOD PRESSURE MEASUREMENT
     Dosage: SVC ER
  3. HUMIRA [Suspect]
     Active Substance: ADALIMUMAB
     Route: 058
     Dates: start: 2018
  4. MYCOPHENOLATE [Concomitant]
     Active Substance: MYCOPHENOLIC ACID
     Indication: PYODERMA GANGRENOSUM
  5. ALLOPURINOL. [Concomitant]
     Active Substance: ALLOPURINOL
     Indication: HYPERSENSITIVITY
  6. HUMIRA [Suspect]
     Active Substance: ADALIMUMAB
     Indication: CROHN^S DISEASE
     Dosage: CF
     Route: 058
     Dates: start: 2008, end: 2018
  7. HUMIRA [Suspect]
     Active Substance: ADALIMUMAB
     Dosage: DOSE INCREASED
     Route: 058
     Dates: start: 2018, end: 2018
  8. MONTELUKAST [Concomitant]
     Active Substance: MONTELUKAST SODIUM
     Indication: HYPERSENSITIVITY
  9. METHOTREXATE. [Concomitant]
     Active Substance: METHOTREXATE
     Indication: HYPERSENSITIVITY
  10. LYRICA [Concomitant]
     Active Substance: PREGABALIN
     Indication: NEURALGIA
  11. METHOTREXATE. [Concomitant]
     Active Substance: METHOTREXATE
     Indication: CROHN^S DISEASE
  12. SIMVASTATIN. [Concomitant]
     Active Substance: SIMVASTATIN
     Indication: BLOOD CHOLESTEROL
  13. XARELTO [Concomitant]
     Active Substance: RIVAROXABAN
     Indication: DEEP VEIN THROMBOSIS
  14. HUMIRA [Suspect]
     Active Substance: ADALIMUMAB
     Dosage: CF
     Route: 058
  15. BACLOFEN. [Concomitant]
     Active Substance: BACLOFEN
     Indication: HYPERSENSITIVITY

REACTIONS (8)
  - Blood uric acid increased [Not Recovered/Not Resolved]
  - Gout [Not Recovered/Not Resolved]
  - Pyoderma gangrenosum [Recovered/Resolved]
  - Hepatic enzyme increased [Not Recovered/Not Resolved]
  - Nephritis [Recovered/Resolved]
  - Hepatitis [Recovered/Resolved]
  - Drug level decreased [Not Recovered/Not Resolved]
  - Renal function test abnormal [Unknown]

NARRATIVE: CASE EVENT DATE: 2017
